FAERS Safety Report 25652318 (Version 3)
Quarter: 2025Q3

REPORT INFORMATION
  Report Type: Report from Study
  Country: US (occurrence: US)
  Receive Date: 20250807
  Receipt Date: 20250908
  Transmission Date: 20251021
  Serious: No
  Sender: SANDOZ
  Company Number: US-SANDOZ-SDZ2025US055390

PATIENT
  Sex: Male

DRUGS (6)
  1. OMNITROPE [Suspect]
     Active Substance: SOMATROPIN
     Route: 065
  2. OMNITROPE [Suspect]
     Active Substance: SOMATROPIN
     Route: 065
  3. OMNITROPE [Suspect]
     Active Substance: SOMATROPIN
     Indication: Short stature
     Dosage: 2.4 MG, QD, STRENGTH: 10 MG/1.5 ML, CARTRIDGE
     Route: 058
     Dates: start: 20250724, end: 20250730
  4. OMNITROPE [Suspect]
     Active Substance: SOMATROPIN
     Indication: Short stature
     Dosage: 2.4 MG, QD, STRENGTH: 10 MG/1.5 ML, CARTRIDGE
     Route: 058
     Dates: start: 20250724, end: 20250730
  5. OMNITROPE [Suspect]
     Active Substance: SOMATROPIN
     Dosage: 2.4 MG, QD, STRENGTH: 10 MG/1.5 ML, CARTRIDGE
     Route: 058
     Dates: start: 20250724, end: 20250730
  6. OMNITROPE [Suspect]
     Active Substance: SOMATROPIN
     Dosage: 2.4 MG, QD, STRENGTH: 10 MG/1.5 ML, CARTRIDGE
     Route: 058
     Dates: start: 20250724, end: 20250730

REACTIONS (3)
  - Drug dose omission by device [Unknown]
  - Incorrect dose administered by device [Unknown]
  - Device leakage [Unknown]

NARRATIVE: CASE EVENT DATE: 20250101
